FAERS Safety Report 15828064 (Version 1)
Quarter: 2019Q1

REPORT INFORMATION
  Report Type: Spontaneous
  Country: US (occurrence: US)
  Receive Date: 20190115
  Receipt Date: 20190115
  Transmission Date: 20190417
  Serious: No
  Sender: FDA-Public Use
  Company Number: US-ALLERGAN-1822818US

PATIENT
  Sex: Female
  Weight: 85 kg

DRUGS (17)
  1. RESTASIS [Suspect]
     Active Substance: CYCLOSPORINE
     Indication: PRODUCT USED FOR UNKNOWN INDICATION
     Dosage: 2 GTT, Q12H
     Route: 047
  2. MAGNESIUM HYDROXIDE. [Concomitant]
     Active Substance: MAGNESIUM HYDROXIDE
     Dosage: 500 MG, QD
     Route: 048
  3. HUMALOG [Concomitant]
     Active Substance: INSULIN LISPRO
     Dosage: 30 UNITS, TID
     Route: 058
  4. DULOXETINE. [Concomitant]
     Active Substance: DULOXETINE
     Dosage: 1 DF, BID
     Route: 048
  5. ENBREL [Concomitant]
     Active Substance: ETANERCEPT
     Dosage: 1 DF, Q WEEK
     Route: 058
  6. BENEFIBER [Concomitant]
     Active Substance: STARCH, WHEAT
     Dosage: UNK UNK, BID
     Route: 048
  7. NIACIN. [Concomitant]
     Active Substance: NIACIN
     Dosage: 1000 MG, QHS
     Route: 048
  8. ERGOCALCIFEROL. [Concomitant]
     Active Substance: ERGOCALCIFEROL
     Dosage: 1 DF, Q WEEK
     Route: 048
  9. METOPROLOL SUCCINATE. [Concomitant]
     Active Substance: METOPROLOL SUCCINATE
     Dosage: 1 DF, QD
     Route: 065
  10. SIMVASTATIN. [Concomitant]
     Active Substance: SIMVASTATIN
     Dosage: 1 DF, UNK
     Route: 048
  11. ERYTHROMYCIN BASE [Concomitant]
     Active Substance: ERYTHROMYCIN
     Route: 047
  12. DESLORATADINE. [Concomitant]
     Active Substance: DESLORATADINE
     Dosage: 5 MG, QD
     Route: 048
  13. MELATONIN [Concomitant]
     Active Substance: MELATONIN
     Dosage: 1 MG, PRN
     Route: 048
  14. LANTUS [Concomitant]
     Active Substance: INSULIN GLARGINE
     Dosage: 60 UNITS, QHS
     Route: 058
  15. MONTELUKAST [Concomitant]
     Active Substance: MONTELUKAST SODIUM
     Dosage: 1 DF, UNK
     Route: 048
  16. OMEPRAZOLE. [Concomitant]
     Active Substance: OMEPRAZOLE
     Dosage: 1 DF, UNK
     Route: 048
  17. SENSIPAR [Concomitant]
     Active Substance: CINACALCET HYDROCHLORIDE
     Dosage: 1 DF, UNK
     Route: 048

REACTIONS (4)
  - Anaemia [Unknown]
  - Asthma [Unknown]
  - Vitamin D deficiency [Unknown]
  - Dyspnoea [Unknown]
